FAERS Safety Report 17103708 (Version 1)
Quarter: 2019Q4

REPORT INFORMATION
  Report Type: Spontaneous
  Country: CN (occurrence: CN)
  Receive Date: 20191203
  Receipt Date: 20191203
  Transmission Date: 20200122
  Serious: Yes (Hospitalization)
  Sender: FDA-Public Use
  Company Number: CN-ABBVIE-19P-035-3178714-00

PATIENT
  Age: 58 Year
  Sex: Male

DRUGS (2)
  1. KLACID [Suspect]
     Active Substance: CLARITHROMYCIN
     Indication: ANTIINFLAMMATORY THERAPY
     Route: 048
     Dates: start: 20191027, end: 20191027
  2. BENZALKONIUM [Suspect]
     Active Substance: BENZALKONIUM
     Indication: ANTIINFLAMMATORY THERAPY
     Route: 061
     Dates: start: 20191027, end: 20191027

REACTIONS (4)
  - Skin exfoliation [Recovering/Resolving]
  - Skin lesion [Recovering/Resolving]
  - Dermatitis contact [Recovering/Resolving]
  - Drug eruption [Recovering/Resolving]

NARRATIVE: CASE EVENT DATE: 20191027
